FAERS Safety Report 17638102 (Version 1)
Quarter: 2020Q2

REPORT INFORMATION
  Report Type: Spontaneous
  Country: SE (occurrence: SE)
  Receive Date: 20200407
  Receipt Date: 20200407
  Transmission Date: 20200713
  Serious: Yes (Death)
  Sender: FDA-Public Use
  Company Number: SE-PFIZER INC-2020142768

PATIENT
  Age: 45 Year
  Sex: Male
  Weight: 92 kg

DRUGS (1)
  1. FRAGMIN [Suspect]
     Active Substance: DALTEPARIN SODIUM
     Indication: THROMBOSIS
     Dosage: 10000 IU/ML MORNING AND EVENING
     Dates: start: 20190926, end: 202002

REACTIONS (1)
  - Intra-abdominal haemorrhage [Fatal]

NARRATIVE: CASE EVENT DATE: 202002
